FAERS Safety Report 16434226 (Version 1)
Quarter: 2019Q2

REPORT INFORMATION
  Report Type: Spontaneous
  Country: US (occurrence: US)
  Receive Date: 20190614
  Receipt Date: 20190614
  Transmission Date: 20190711
  Serious: No
  Sender: FDA-Public Use
  Company Number: US-DSJP-DSU-2019-122372

PATIENT

DRUGS (2)
  1. COLESEVELAM HCL [Suspect]
     Active Substance: COLESEVELAM HYDROCHLORIDE
     Indication: DIARRHOEA
     Dosage: 625MG, 3-6 TABS QD PRN
     Route: 048
     Dates: start: 2019
  2. WELCHOL [Suspect]
     Active Substance: COLESEVELAM HYDROCHLORIDE
     Indication: DIARRHOEA
     Dosage: 625MG, 3-6 TABS QD PRN
     Route: 048
     Dates: end: 2019

REACTIONS (1)
  - Off label use [Recovered/Resolved]
